FAERS Safety Report 9659910 (Version 2)
Quarter: 2013Q4

REPORT INFORMATION
  Report Type: Report from Study
  Country: US (occurrence: US)
  Receive Date: 20131031
  Receipt Date: 20131031
  Transmission Date: 20140711
  Serious: Yes (Hospitalization)
  Sender: FDA-Public Use
  Company Number: US-ELI_LILLY_AND_COMPANY-US201309005916

PATIENT
  Age: 67 Year
  Sex: Male
  Weight: 75.3 kg

DRUGS (10)
  1. GSK-3 BETA INHIBITOR-CANCER (LY2090314) [Suspect]
     Indication: PANCREATIC CARCINOMA METASTATIC
     Dosage: 40 MG, CYCLICAL
     Route: 042
     Dates: start: 20130911
  2. GEMCITABINE HYDROCHLORIDE [Suspect]
     Indication: PANCREATIC CARCINOMA METASTATIC
     Dosage: 1000 MG/M2, CYCLICAL
     Route: 042
     Dates: start: 20130912
  3. MORPHINE SULFATE [Concomitant]
     Indication: PAIN
     Dosage: UNK
     Dates: start: 201306
  4. ZOFRAN [Concomitant]
     Indication: NAUSEA
     Dosage: UNK
     Dates: start: 201306
  5. COLCRYS [Concomitant]
     Indication: GOUT
  6. CLONAZEPAM [Concomitant]
     Indication: ANXIETY
     Dosage: UNK
     Dates: start: 201306
  7. LEVSIN [Concomitant]
     Indication: GASTROINTESTINAL DISORDER
     Dosage: UNK
     Dates: start: 20130707
  8. OMEPRAZOLE [Concomitant]
     Indication: GASTROOESOPHAGEAL REFLUX DISEASE
     Dosage: UNK
     Dates: start: 2010
  9. TYLENOL                                 /SCH/ [Concomitant]
     Indication: PAIN
     Dosage: UNK
     Dates: start: 2013
  10. LEVOFLOXACIN [Concomitant]
     Indication: INFECTION PROPHYLAXIS
     Dosage: UNK
     Dates: start: 20130903, end: 20130928

REACTIONS (6)
  - Anaemia [Recovering/Resolving]
  - Dehydration [Recovered/Resolved with Sequelae]
  - Small intestinal obstruction [Recovered/Resolved with Sequelae]
  - Skin infection [Recovered/Resolved with Sequelae]
  - Fistula [Unknown]
  - Diarrhoea [Recovered/Resolved with Sequelae]
